FAERS Safety Report 12449288 (Version 3)
Quarter: 2016Q3

REPORT INFORMATION
  Report Type: Report from Study
  Country: FR (occurrence: FR)
  Receive Date: 20160608
  Receipt Date: 20160711
  Transmission Date: 20161109
  Serious: Yes (Hospitalization)
  Sender: FDA-Public Use
  Company Number: FR-ASTRAZENECA-2016SE56838

PATIENT
  Age: 649 Month
  Sex: Female

DRUGS (5)
  1. TAGRISSO [Suspect]
     Active Substance: OSIMERTINIB
     Indication: NON-SMALL CELL LUNG CANCER
     Route: 048
     Dates: start: 20160613
  2. PANTOPRAZOLE [Concomitant]
     Active Substance: PANTOPRAZOLE SODIUM
     Indication: ABDOMINAL DISCOMFORT
     Route: 048
     Dates: start: 20160405
  3. LEVOTHYROX [Concomitant]
     Active Substance: LEVOTHYROXINE
     Indication: HYPOTHYROIDISM
     Dosage: 175 MG ??? TABLET PER DAY
     Route: 048
     Dates: start: 20140110
  4. SOLUPRED [Concomitant]
     Active Substance: PREDNISOLONE
     Indication: DECREASED APPETITE
     Route: 048
     Dates: start: 20160405
  5. TAGRISSO [Suspect]
     Active Substance: OSIMERTINIB
     Indication: NON-SMALL CELL LUNG CANCER
     Route: 048
     Dates: start: 20160427, end: 20160525

REACTIONS (11)
  - Breath odour [Recovering/Resolving]
  - Aspartate aminotransferase abnormal [Not Recovered/Not Resolved]
  - Hypophagia [Recovered/Resolved]
  - Haematocrit decreased [Not Recovered/Not Resolved]
  - Platelet count abnormal [Recovered/Resolved]
  - Vomiting [Recovered/Resolved]
  - General physical health deterioration [Recovered/Resolved]
  - Mean cell haemoglobin concentration increased [Not Recovered/Not Resolved]
  - Haemoglobin decreased [Not Recovered/Not Resolved]
  - Mean cell volume increased [Not Recovered/Not Resolved]
  - Salivary hypersecretion [Recovered/Resolved]

NARRATIVE: CASE EVENT DATE: 201605
